FAERS Safety Report 17229172 (Version 2)
Quarter: 2020Q1

REPORT INFORMATION
  Report Type: Spontaneous
  Country: IT (occurrence: IT)
  Receive Date: 20200103
  Receipt Date: 20200127
  Transmission Date: 20200409
  Serious: Yes (Death)
  Sender: FDA-Public Use
  Company Number: IT-TEVA-2019-IT-1160501

PATIENT
  Age: 79 Year
  Sex: Female

DRUGS (5)
  1. METOCAL VITAMINA D3 [Concomitant]
     Route: 048
  2. TAREG [Concomitant]
     Active Substance: VALSARTAN
     Dosage: 80 MG
     Route: 048
  3. TICLOPIDINE [Suspect]
     Active Substance: TICLOPIDINE
     Indication: THROMBOSIS PROPHYLAXIS
     Dosage: 2 DOSAGE FORM
     Route: 048
     Dates: start: 20190901, end: 20191112
  4. TIMOPTOL [Concomitant]
     Active Substance: TIMOLOL
  5. NORVASC [Concomitant]
     Active Substance: AMLODIPINE BESYLATE
     Dosage: 2.5 MG
     Route: 048

REACTIONS (3)
  - Thrombocytopenia [Fatal]
  - Neutropenia [Fatal]
  - Anaemia [Fatal]

NARRATIVE: CASE EVENT DATE: 20191112
